FAERS Safety Report 14517849 (Version 5)
Quarter: 2020Q2

REPORT INFORMATION
  Report Type: Spontaneous
  Country: US (occurrence: US)
  Receive Date: 20180212
  Receipt Date: 20200521
  Transmission Date: 20200713
  Serious: No
  Sender: FDA-Public Use
  Company Number: US-PFIZER INC-2018057227

PATIENT
  Age: 28 Year
  Sex: Male
  Weight: 95.25 kg

DRUGS (3)
  1. HYDROCORTISONE. [Suspect]
     Active Substance: HYDROCORTISONE
     Indication: HYPOPITUITARISM
     Dosage: 20 MG, 2X/DAY
     Route: 048
  2. HYDROCORTISONE. [Suspect]
     Active Substance: HYDROCORTISONE
     Indication: ADRENAL INSUFFICIENCY
     Dosage: 20 MG, 3X/DAY
     Route: 048
     Dates: start: 2013
  3. TESTOSTERONE CIPIONATE [Suspect]
     Active Substance: TESTOSTERONE
     Dosage: 200 MG

REACTIONS (3)
  - Suspected counterfeit product [Unknown]
  - Cortisol decreased [Unknown]
  - Drug ineffective [Unknown]
